FAERS Safety Report 7127388-5 (Version None)
Quarter: 2010Q4

REPORT INFORMATION
  Report Type: 
  Country: None (occurrence: None)
  Receive Date: 20101129
  Receipt Date: 20091130
  Transmission Date: 20110411
  Serious: Yes (Other)
  Sender: FDA-Public Use
  Company Number: US-PFIZER INC-2009282327

PATIENT
  Sex: Female
  Weight: 54.422 kg

DRUGS (11)
  1. REVATIO [Suspect]
     Indication: PULMONARY HYPERTENSION
     Dosage: 80 MG, 3X/DAY
  2. ILOPROST [Concomitant]
     Dosage: UNK
  3. AMBRISENTAN [Concomitant]
     Dosage: UNK
  4. DEMADEX [Concomitant]
     Dosage: UNK
  5. HYDROCHLOROTHIAZIDE [Concomitant]
     Dosage: UNK
  6. WARFARIN SODIUM [Concomitant]
     Dosage: UNK
  7. DIGITEK [Concomitant]
     Dosage: UNK
  8. SPIRONOLACTONE [Concomitant]
     Dosage: UNK
  9. LEVOTHYROXINE SODIUM [Concomitant]
     Dosage: UNK
  10. SIMVASTATIN [Concomitant]
     Dosage: UNK
  11. NORVASC [Concomitant]
     Dosage: UNK

REACTIONS (2)
  - DEAFNESS [None]
  - INTENTIONAL DRUG MISUSE [None]
